FAERS Safety Report 11427897 (Version 5)
Quarter: 2015Q3

REPORT INFORMATION
  Report Type: Report from Study
  Country: US (occurrence: US)
  Receive Date: 20150828
  Receipt Date: 20150928
  Transmission Date: 20151125
  Serious: No
  Sender: FDA-Public Use
  Company Number: US-AMGEN-USASP2015086918

PATIENT
  Age: 61 Year
  Sex: Female

DRUGS (1)
  1. ENBREL [Suspect]
     Active Substance: ETANERCEPT
     Indication: ANKYLOSING SPONDYLITIS
     Dosage: 50 MG, QWK
     Route: 065
     Dates: start: 20150726

REACTIONS (7)
  - Pain [Unknown]
  - Frustration [Unknown]
  - Drug dose omission [Unknown]
  - Injection site pain [Unknown]
  - Device issue [Unknown]
  - Fear of injection [Unknown]
  - Induration [Unknown]

NARRATIVE: CASE EVENT DATE: 2015
